FAERS Safety Report 13829734 (Version 2)
Quarter: 2017Q3

REPORT INFORMATION
  Report Type: Spontaneous
  Country: US (occurrence: US)
  Receive Date: 20170803
  Receipt Date: 20170824
  Transmission Date: 20171127
  Serious: Yes (Other)
  Sender: FDA-Public Use
  Company Number: US-TARO-2017TAR00618

PATIENT
  Sex: Female
  Weight: 73.16 kg

DRUGS (1)
  1. CLOTRIMAZOLE LOZENGE [Suspect]
     Active Substance: CLOTRIMAZOLE

REACTIONS (1)
  - Anaphylactic reaction [Unknown]
